FAERS Safety Report 11138963 (Version 1)
Quarter: 2015Q2

REPORT INFORMATION
  Report Type: Spontaneous
  Country: US (occurrence: US)
  Receive Date: 20150527
  Receipt Date: 20150527
  Transmission Date: 20150821
  Serious: Yes (Hospitalization, Other)
  Sender: FDA-Public Use
  Company Number: US-GLENMARK GENERICS (EUROPE) LTD-2015GMK017236

PATIENT
  Age: 22 Year
  Sex: Female

DRUGS (2)
  1. GABAPENTIN. [Suspect]
     Active Substance: GABAPENTIN
     Dosage: 800 MG, QID
  2. GABAPENTIN. [Suspect]
     Active Substance: GABAPENTIN
     Indication: PRODUCT USED FOR UNKNOWN INDICATION
     Dosage: UNK

REACTIONS (6)
  - Hallucination, auditory [Recovered/Resolved]
  - Drug level above therapeutic [Recovered/Resolved]
  - Myoclonus [Recovered/Resolved]
  - Tachycardia [Unknown]
  - Acute kidney injury [Recovered/Resolved]
  - Hallucination, visual [Recovered/Resolved]
